FAERS Safety Report 4897690-6 (Version None)
Quarter: 2006Q1

REPORT INFORMATION
  Report Type: 
  Country: None (occurrence: None)
  Receive Date: 20060130
  Receipt Date: 20060130
  Transmission Date: 20060701
  Serious: No
  Sender: FDA-Public Use
  Company Number: None

PATIENT
  Age: 34 Year
  Sex: Female
  Weight: 134.7183 kg

DRUGS (1)
  1. PAXIL [Suspect]
     Indication: COLITIS
     Dosage: 40 MG ONCE PER DAY PO
     Route: 048
     Dates: start: 20011001, end: 20060120

REACTIONS (4)
  - DRUG WITHDRAWAL SYNDROME [None]
  - ECONOMIC PROBLEM [None]
  - LOSS OF EMPLOYMENT [None]
  - TREATMENT NONCOMPLIANCE [None]
